FAERS Safety Report 5403440-7 (Version None)
Quarter: 2007Q3

REPORT INFORMATION
  Report Type: 
  Country: None (occurrence: None)
  Receive Date: 20070730
  Receipt Date: 20070717
  Transmission Date: 20080115
  Serious: Yes (Death)
  Sender: FDA-Public Use
  Company Number: 2007JP003410

PATIENT
  Age: 31 Year
  Sex: Male

DRUGS (9)
  1. PROGRAF [Suspect]
     Indication: STEM CELL TRANSPLANT
  2. FLUDARABINE(FLUDARABINE) FORMULATION UNKNOWN [Suspect]
     Indication: STEM CELL TRANSPLANT
     Dosage: 30 MG/M2, UID/QD,
  3. BUSULFEX(BUSULFAN) FORMULATION UNKNOWN [Suspect]
     Indication: STEM CELL TRANSPLANT
     Dosage: 3.2 MG/KG, UID/QD,
  4. ANTITHYMOCYTE IMMUNOGLOBULIN (RABBIT)(ANTITHYMOCYTE IMMUNOGLOBULIN (RA [Suspect]
     Indication: STEM CELL TRANSPLANT
     Dosage: 2.5 MG/KG, UID/QD,
  5. METHOTREXATE [Suspect]
     Indication: STEM CELL TRANSPLANT
  6. ANTIBIOTICS PER ORAL NOS [Concomitant]
  7. ANTIVIRALS NOS FORMULATION UNKNOWN [Concomitant]
  8. ANTIFUNGALS FORMULATION UNKNOWN [Concomitant]
  9. IMMUNOGLOBULIN (IMMUNOGLOBULIN) INJECTION [Concomitant]

REACTIONS (3)
  - BLOOD STEM CELL TRANSPLANT FAILURE [None]
  - HEPATITIS [None]
  - PNEUMONIA [None]
